FAERS Safety Report 18001088 (Version 1)
Quarter: 2020Q3

REPORT INFORMATION
  Report Type: Spontaneous
  Country: DE (occurrence: DE)
  Receive Date: 20200709
  Receipt Date: 20200709
  Transmission Date: 20201103
  Serious: Yes (Hospitalization)
  Sender: FDA-Public Use
  Company Number: DE-TEVA-2020-DE-1790540

PATIENT
  Age: 84 Year
  Sex: Female

DRUGS (5)
  1. DULOXETIN [Suspect]
     Active Substance: DULOXETINE
     Dosage: 40 MG, NK
     Route: 065
  2. ALENDRONSAURE [Concomitant]
     Active Substance: ALENDRONIC ACID
     Dosage: 70 MG / WEEK, NK
  3. VOCADO HCT 20MG/5MG/12,5MG [Suspect]
     Active Substance: AMLODIPINE BESYLATE\HYDROCHLOROTHIAZIDE\OLMESARTAN MEDOXOMIL
     Dosage: 5 /12.5/20 MG, NK
     Route: 065
  4. JODID?RATIOPHARM 200UG [Concomitant]
     Dosage: 0.2 MG, NK
  5. RANEXA [Suspect]
     Active Substance: RANOLAZINE
     Dosage: 375 MG, NK
     Route: 065

REACTIONS (4)
  - Condition aggravated [Unknown]
  - Dehydration [Unknown]
  - Bradycardia [Unknown]
  - Dizziness [Unknown]
